FAERS Safety Report 8175358-0 (Version None)
Quarter: 2012Q1

REPORT INFORMATION
  Report Type: 
  Country: None (occurrence: None)
  Receive Date: 20120229
  Receipt Date: 20120224
  Transmission Date: 20120608
  Serious: Yes (Other)
  Sender: FDA-Public Use
  Company Number: BR-PFIZER INC-2012035852

PATIENT
  Age: 62 Year
  Sex: Female
  Weight: 48 kg

DRUGS (3)
  1. VARENICLINE TARTRATE [Suspect]
     Indication: SMOKING CESSATION THERAPY
     Dosage: UNK
     Route: 048
     Dates: start: 20120204, end: 20120201
  2. VARENICLINE TARTRATE [Suspect]
     Dosage: 1 MG, 2X/DAY (EVERY 12 HOURS)
     Route: 048
     Dates: start: 20120201
  3. SPIRIVA [Concomitant]
     Indication: CHRONIC OBSTRUCTIVE PULMONARY DISEASE
     Dosage: UNK

REACTIONS (10)
  - TOBACCO USER [None]
  - SNEEZING [None]
  - ANXIETY [None]
  - FEELING ABNORMAL [None]
  - APATHY [None]
  - VOMITING [None]
  - NAUSEA [None]
  - EATING DISORDER [None]
  - BLOOD PRESSURE INCREASED [None]
  - ABDOMINAL DISCOMFORT [None]
